FAERS Safety Report 10708849 (Version 2)
Quarter: 2015Q1

REPORT INFORMATION
  Report Type: Spontaneous
  Country: IT (occurrence: IT)
  Receive Date: 20150113
  Receipt Date: 20150204
  Transmission Date: 20150721
  Serious: No
  Sender: FDA-Public Use
  Company Number: PHHY2014IT166473

PATIENT
  Sex: Male

DRUGS (2)
  1. TRIATEC [Suspect]
     Active Substance: RAMIPRIL
     Indication: ESSENTIAL HYPERTENSION
     Dosage: 2.5 MG, QD
     Route: 048
     Dates: start: 20100101, end: 20141101
  2. CARVEDILOL. [Suspect]
     Active Substance: CARVEDILOL
     Indication: ISCHAEMIC CARDIOMYOPATHY
     Dosage: 2.5 MG, QD
     Route: 048
     Dates: start: 20100101, end: 20141101

REACTIONS (5)
  - Dysphagia [Unknown]
  - Dysphonia [Unknown]
  - Oedema [Unknown]
  - Breath sounds abnormal [Unknown]
  - Palatal oedema [Unknown]
